FAERS Safety Report 4606430-7 (Version None)
Quarter: 2005Q2

REPORT INFORMATION
  Report Type: 
  Country: None (occurrence: None)
  Receive Date: 20050223
  Receipt Date: 20041022
  Transmission Date: 20051028
  Serious: Yes (Disabling)
  Sender: FDA-Public Use
  Company Number: WAES  0410USA03522

PATIENT
  Age: 62 Year
  Sex: Female

DRUGS (8)
  1. ZOCOR [Suspect]
     Indication: BLOOD CHOLESTEROL INCREASED
     Dosage: PO
     Route: 048
     Dates: start: 20030101
  2. ZOCOR [Suspect]
     Indication: BLOOD CHOLESTEROL INCREASED
     Dosage: 80 MG/PO
     Route: 048
     Dates: end: 20040101
  3. COZAAR [Concomitant]
  4. LEVOTHROID [Concomitant]
  5. OXYCONTIN [Concomitant]
  6. ZETIA [Concomitant]
  7. NABUMETONE [Concomitant]
  8. VERAPAMIL [Concomitant]

REACTIONS (1)
  - ASTHENIA [None]
